FAERS Safety Report 15942271 (Version 1)
Quarter: 2019Q1

REPORT INFORMATION
  Report Type: Spontaneous
  Country: US (occurrence: US)
  Receive Date: 20190211
  Receipt Date: 20190211
  Transmission Date: 20190417
  Serious: Yes (Hospitalization)
  Sender: FDA-Public Use
  Company Number: None

PATIENT
  Age: 55 Year
  Sex: Male
  Weight: 88.6 kg

DRUGS (1)
  1. XOSPATA [Suspect]
     Active Substance: GILTERITINIB
     Indication: ACUTE MYELOID LEUKAEMIA REFRACTORY
     Route: 048
     Dates: start: 20181220, end: 20190201

REACTIONS (9)
  - Hypokalaemia [None]
  - Chest X-ray abnormal [None]
  - Hypophosphataemia [None]
  - Leukocytosis [None]
  - Fall [None]
  - Anaemia [None]
  - Hyperglycaemia [None]
  - Body temperature increased [None]
  - Acute kidney injury [None]

NARRATIVE: CASE EVENT DATE: 20190201
